FAERS Safety Report 5151885-5 (Version None)
Quarter: 2006Q4

REPORT INFORMATION
  Report Type: 
  Country: None (occurrence: None)
  Receive Date: 20061109
  Receipt Date: 20060926
  Transmission Date: 20070319
  Serious: Yes (Other)
  Sender: FDA-Public Use
  Company Number: 2006AP000764

PATIENT
  Age: 26 Year
  Sex: Male

DRUGS (1)
  1. ACYCLOVIR [Suspect]
     Indication: HERPES ZOSTER
     Dosage: 1000MG; PO; QD
     Route: 048
     Dates: start: 20060901, end: 20060908

REACTIONS (3)
  - ANXIETY [None]
  - NERVOUSNESS [None]
  - VISUAL DISTURBANCE [None]
